FAERS Safety Report 4491006-5 (Version None)
Quarter: 2004Q4

REPORT INFORMATION
  Report Type: 
  Country: None (occurrence: None)
  Receive Date: 20041027
  Receipt Date: 20041011
  Transmission Date: 20050328
  Serious: Yes (Death)
  Sender: FDA-Public Use
  Company Number: L04-SWE-06630-05

PATIENT
  Age: 65 Year
  Sex: Female

DRUGS (5)
  1. CITALOPRAM [Suspect]
  2. ETHANOL [Concomitant]
  3. DIAZEPAM [Concomitant]
  4. NORDIAZEPAM [Concomitant]
  5. ZOLPIDEM [Concomitant]

REACTIONS (3)
  - BLOOD ALCOHOL INCREASED [None]
  - LABORATORY TEST ABNORMAL [None]
  - MYOCARDIAL ISCHAEMIA [None]
